FAERS Safety Report 15982375 (Version 1)
Quarter: 2019Q1

REPORT INFORMATION
  Report Type: Spontaneous
  Country: IT (occurrence: IT)
  Receive Date: 20190219
  Receipt Date: 20190219
  Transmission Date: 20190418
  Serious: Yes (Other)
  Sender: FDA-Public Use
  Company Number: IT-PFIZER INC-2019068025

PATIENT
  Age: 64 Year
  Sex: Female

DRUGS (3)
  1. PACLITAXEL. [Suspect]
     Active Substance: PACLITAXEL
     Indication: FALLOPIAN TUBE CANCER STAGE IV
     Dosage: 300 MG, CYCLIC
     Route: 042
     Dates: start: 20180615, end: 20181107
  2. CARBOPLATIN. [Suspect]
     Active Substance: CARBOPLATIN
     Indication: FALLOPIAN TUBE CANCER STAGE IV
     Dosage: 450 MG, CYCLIC
     Route: 042
     Dates: start: 20180615, end: 20181107
  3. BEVACIZUMAB. [Suspect]
     Active Substance: BEVACIZUMAB
     Indication: FALLOPIAN TUBE CANCER STAGE IV
     Dosage: 1200 MG, CYCLIC
     Route: 042
     Dates: start: 20180615, end: 20190107

REACTIONS (1)
  - Proteinuria [Unknown]

NARRATIVE: CASE EVENT DATE: 20190109
